FAERS Safety Report 8384641-5 (Version None)
Quarter: 2012Q2

REPORT INFORMATION
  Report Type: 
  Country: None (occurrence: None)
  Receive Date: 20120524
  Receipt Date: 20120522
  Transmission Date: 20120825
  Serious: Yes (Other)
  Sender: FDA-Public Use
  Company Number: US-PFIZER INC-2012087501

PATIENT
  Sex: Female

DRUGS (2)
  1. PHENYLEPHRINE HYDROCHLORIDE [Suspect]
     Indication: CONSTIPATION
     Dosage: UNK, 2X/DAY
     Route: 054
     Dates: start: 20010101
  2. PHENYLEPHRINE HYDROCHLORIDE [Suspect]
     Indication: HAEMORRHOIDS

REACTIONS (1)
  - HAEMORRHAGE [None]
